FAERS Safety Report 10023933 (Version 1)
Quarter: 2014Q1

REPORT INFORMATION
  Report Type: Spontaneous
  Country: US (occurrence: None)
  Receive Date: 20140319
  Receipt Date: 20140319
  Transmission Date: 20141002
  Serious: Yes (Other)
  Sender: FDA-Public Use
  Company Number: None

PATIENT
  Age: 38 Year
  Sex: Female
  Weight: 86.18 kg

DRUGS (13)
  1. DEXAMETHASONE 4MG TABLETS GREEN FRONT:54892 [Suspect]
     Indication: INFLAMMATION
     Dosage: 4MG 4 PILLS 4 PILLS PER DAY FOR 2 DAYS
     Route: 048
     Dates: start: 20130306, end: 20140306
  2. ALPRAZOLAM [Concomitant]
  3. XOPENEX [Concomitant]
  4. TRAZADONE [Concomitant]
  5. PRISTIQ [Concomitant]
  6. MONTELUKAST [Concomitant]
  7. METHYLPREDNISOLONE [Concomitant]
  8. LINZESS [Concomitant]
  9. CENTRUM [Concomitant]
  10. D200 IU [Concomitant]
  11. CALCIUM+ D [Concomitant]
  12. OSTEO BI-FLEX/CHO HIC [Concomitant]
  13. ZYRETC [Concomitant]

REACTIONS (2)
  - Urticaria [None]
  - Rash [None]
